FAERS Safety Report 6856166-7 (Version None)
Quarter: 2010Q3

REPORT INFORMATION
  Report Type: 
  Country: None (occurrence: None)
  Receive Date: 20100719
  Receipt Date: 20100708
  Transmission Date: 20110219
  Serious: Yes (Hospitalization, Other)
  Sender: FDA-Public Use
  Company Number: PHMT2006CA01785

PATIENT
  Sex: Female

DRUGS (8)
  1. SANDOSTATIN LAR [Suspect]
     Indication: CARCINOID TUMOUR
     Dosage: 20 MG EVERY FOUR WEEKS
     Route: 030
     Dates: start: 20060516
  2. SANDOSTATIN LAR [Suspect]
     Dosage: 30 MG Q 4WEEKS
  3. SANDOSTATIN LAR [Suspect]
     Dosage: 20 MG EVERY 4 WEEKS
     Route: 030
     Dates: start: 20070407
  4. SANDOSTATIN LAR [Suspect]
     Dosage: 30 MG EVERY 4 WEEKS
     Route: 030
  5. SANDOSTATIN LAR [Suspect]
     Dosage: 30 MG, QMO
     Route: 030
  6. POTASSIUM CHLORIDE [Concomitant]
  7. CHEMOTHERAPEUTICS NOS [Concomitant]
  8. BLOOD TRANSFUSION [Concomitant]

REACTIONS (8)
  - FATIGUE [None]
  - HEPATECTOMY [None]
  - HEPATIC NEOPLASM MALIGNANT RESECTABLE [None]
  - MALIGNANT NEOPLASM PROGRESSION [None]
  - OEDEMA PERIPHERAL [None]
  - PALLIATIVE CARE [None]
  - PNEUMONIA [None]
  - THERAPEUTIC EMBOLISATION [None]
